FAERS Safety Report 8317057-8 (Version None)
Quarter: 2012Q2

REPORT INFORMATION
  Report Type: 
  Country: None (occurrence: None)
  Receive Date: 20120427
  Receipt Date: 20120423
  Transmission Date: 20120825
  Serious: Yes (Other)
  Sender: FDA-Public Use
  Company Number: US-PFIZER INC-2012100426

PATIENT
  Sex: Female
  Weight: 50.79 kg

DRUGS (3)
  1. GENOTROPIN [Suspect]
     Indication: TURNER'S SYNDROME
     Dosage: UNK
     Dates: start: 20081001
  2. PREMARIN [Concomitant]
     Indication: OVARIAN FAILURE
     Dosage: 0.3 MG, DAILY
     Route: 048
  3. GENOTROPIN [Suspect]
     Dosage: 2.4 MG, DAILY

REACTIONS (1)
  - PNEUMONIA [None]
